FAERS Safety Report 16131369 (Version 1)
Quarter: 2019Q1

REPORT INFORMATION
  Report Type: Other
  Country: DK (occurrence: DK)
  Receive Date: 20190328
  Receipt Date: 20190328
  Transmission Date: 20190418
  Serious: Yes (Life-Threatening)
  Sender: FDA-Public Use
  Company Number: DK-DENTSPLY-2019SCDP000178

PATIENT
  Age: 50 Year
  Sex: Male
  Weight: 85 kg

DRUGS (1)
  1. MEPIVACAINE HCL [Suspect]
     Active Substance: MEPIVACAINE\MEPIVACAINE HYDROCHLORIDE
     Indication: MUSCLE INJURY
     Dosage: UNK
     Dates: start: 20180703

REACTIONS (3)
  - Anaphylactic reaction [None]
  - Upper airway obstruction [None]
  - Rash generalised [None]

NARRATIVE: CASE EVENT DATE: 20180703
